APPROVED DRUG PRODUCT: ISOPROTERENOL HYDROCHLORIDE
Active Ingredient: ISOPROTERENOL HYDROCHLORIDE
Strength: 0.2MG/ML
Dosage Form/Route: INJECTABLE;INJECTION
Application: A212189 | Product #001 | TE Code: AP
Applicant: AVET LIFESCIENCES LTD
Approved: Nov 19, 2021 | RLD: No | RS: No | Type: RX